FAERS Safety Report 16446966 (Version 2)
Quarter: 2022Q3

REPORT INFORMATION
  Report Type: Spontaneous
  Country: US (occurrence: US)
  Receive Date: 20190618
  Receipt Date: 20220807
  Transmission Date: 20221027
  Serious: Yes (Hospitalization, Other)
  Sender: FDA-Public Use
  Company Number: US-ORGANON-2009-191645-NL

PATIENT
  Age: 31 Year
  Sex: Female

DRUGS (4)
  1. HUMEGON [Suspect]
     Active Substance: FOLLITROPIN\LUTEINIZING HORMONE
     Indication: Ovulation induction
     Dosage: UNK DF, UNK
  2. PREGNYL [Suspect]
     Active Substance: CHORIOGONADOTROPIN ALFA
     Indication: Ovulation induction
     Dosage: UNK DF, UNK
  3. SERTRALINE HYDROCHLORIDE [Concomitant]
     Active Substance: SERTRALINE HYDROCHLORIDE
     Dosage: UNK DF, UNK
  4. PROGESTERONE [Concomitant]
     Active Substance: PROGESTERONE
     Indication: Ovulation induction
     Dosage: UNK DF, UNK

REACTIONS (1)
  - Ovarian hyperstimulation syndrome [Recovered/Resolved]
